FAERS Safety Report 6675215-2 (Version None)
Quarter: 2010Q2

REPORT INFORMATION
  Report Type: 
  Country: None (occurrence: None)
  Receive Date: 20100409
  Receipt Date: 20100330
  Transmission Date: 20101027
  Serious: Yes (Other)
  Sender: FDA-Public Use
  Company Number: US-PFIZER INC-2010034971

PATIENT

DRUGS (2)
  1. GEODON [Suspect]
     Indication: DEPRESSIVE SYMPTOM
     Dosage: UNK
  2. PROZAC [Interacting]
     Indication: DEPRESSIVE SYMPTOM
     Dosage: UNK

REACTIONS (2)
  - DRUG INTERACTION [None]
  - ELECTROCARDIOGRAM QT PROLONGED [None]
